FAERS Safety Report 8417977-X (Version None)
Quarter: 2012Q2

REPORT INFORMATION
  Report Type: 
  Country: None (occurrence: None)
  Receive Date: 20120607
  Receipt Date: 20120528
  Transmission Date: 20120825
  Serious: Yes (Hospitalization)
  Sender: FDA-Public Use
  Company Number: CA-JNJFOC-20120519612

PATIENT
  Sex: Female
  Weight: 91 kg

DRUGS (6)
  1. FLUID THERAPY [Concomitant]
     Dosage: GIVEN FOR 4 DAYS
     Route: 042
  2. MORPHINE [Concomitant]
     Route: 058
  3. GRAVOL TAB [Concomitant]
     Route: 048
  4. HEPARIN [Concomitant]
     Route: 058
  5. BENADRYL [Concomitant]
     Route: 048
  6. REMICADE [Suspect]
     Indication: CROHN'S DISEASE
     Route: 042
     Dates: start: 20101005

REACTIONS (3)
  - VOMITING [None]
  - HAEMATEMESIS [None]
  - NAUSEA [None]
